FAERS Safety Report 7232604-5 (Version None)
Quarter: 2011Q1

REPORT INFORMATION
  Report Type: 
  Country: None (occurrence: None)
  Receive Date: 20110119
  Receipt Date: 20110110
  Transmission Date: 20110831
  Serious: Yes (Hospitalization, Other)
  Sender: FDA-Public Use
  Company Number: PHHY2011US02107

PATIENT
  Sex: Male

DRUGS (1)
  1. MYFORTIC [Suspect]
     Indication: POLYMYOSITIS
     Dosage: 1080 MG, BID
     Route: 048
     Dates: start: 20100801

REACTIONS (3)
  - HYPOTENSION [None]
  - PROSTATE CANCER [None]
  - DISORIENTATION [None]
